FAERS Safety Report 15348655 (Version 1)
Quarter: 2018Q3

REPORT INFORMATION
  Report Type: Spontaneous
  Country: IN (occurrence: IN)
  Receive Date: 20180904
  Receipt Date: 20180904
  Transmission Date: 20181010
  Serious: Yes (Death)
  Sender: FDA-Public Use
  Company Number: IN-HQ SPECIALTY-IN-2018INT000164

PATIENT
  Age: 13 Year
  Sex: Male

DRUGS (3)
  1. CISPLATIN. [Suspect]
     Active Substance: CISPLATIN
     Indication: INTRACRANIAL GERM CELL TUMOUR
     Dosage: UNK (THREE CYCLES)
     Route: 065
  2. BLEOMYCIN [Suspect]
     Active Substance: BLEOMYCIN SULFATE
     Indication: INTRACRANIAL GERM CELL TUMOUR
     Dosage: UNK (THREE CYCLES)
     Route: 065
  3. ETOPOSIDE. [Suspect]
     Active Substance: ETOPOSIDE
     Indication: INTRACRANIAL GERM CELL TUMOUR
     Dosage: UNK (THREE CYCLES)
     Route: 065

REACTIONS (2)
  - Sepsis [Fatal]
  - Febrile neutropenia [Fatal]
